FAERS Safety Report 9931414 (Version 2)
Quarter: 2014Q2

REPORT INFORMATION
  Report Type: Spontaneous
  Country: DE (occurrence: DE)
  Receive Date: 20140228
  Receipt Date: 20140408
  Transmission Date: 20141212
  Serious: Yes (Other)
  Sender: FDA-Public Use
  Company Number: DE-BRISTOL-MYERS SQUIBB COMPANY-20265401

PATIENT
  Age: 83 Year
  Sex: Female
  Weight: 65 kg

DRUGS (4)
  1. ELIQUIS [Suspect]
     Dosage: TABS
     Route: 048
  2. VITAMIN [Concomitant]
  3. MINERALS [Concomitant]
  4. TROMCARDIN [Concomitant]

REACTIONS (3)
  - Maculopathy [Unknown]
  - Cataract [Unknown]
  - Visual acuity reduced [Not Recovered/Not Resolved]
